FAERS Safety Report 5352070-4 (Version None)
Quarter: 2007Q2

REPORT INFORMATION
  Report Type: 
  Country: None (occurrence: None)
  Receive Date: 20070611
  Receipt Date: 20070608
  Transmission Date: 20071010
  Serious: Yes (Hospitalization)
  Sender: FDA-Public Use
  Company Number: US-BRISTOL-MYERS SQUIBB COMPANY-13062229

PATIENT
  Age: 53 Year
  Sex: Male

DRUGS (7)
  1. CARBOPLATIN [Suspect]
     Indication: NON-SMALL CELL LUNG CANCER
     Route: 042
     Dates: start: 20050720, end: 20050720
  2. ABRAXANE [Suspect]
     Indication: NON-SMALL CELL LUNG CANCER
     Route: 041
     Dates: start: 20050720, end: 20050720
  3. ACETYLSALICYLIC ACID SRT [Concomitant]
     Indication: ANGINA PECTORIS
  4. FOSINOPRIL + HCTZ [Concomitant]
     Indication: ANGINA PECTORIS
  5. CARBAMAZEPINE [Concomitant]
     Indication: ANGINA PECTORIS
  6. BISOPROLOL FUMARATE [Concomitant]
     Indication: ANGINA PECTORIS
  7. ISOSORBIDE DINITRATE [Concomitant]
     Indication: ANGINA PECTORIS

REACTIONS (1)
  - ANGINA UNSTABLE [None]
